FAERS Safety Report 20170726 (Version 1)
Quarter: 2021Q4

REPORT INFORMATION
  Report Type: Spontaneous
  Country: US (occurrence: US)
  Receive Date: 20211210
  Receipt Date: 20211210
  Transmission Date: 20220303
  Serious: No
  Sender: FDA-Public Use
  Company Number: US-PFIZER INC-202101715329

PATIENT
  Sex: Female

DRUGS (5)
  1. CLEOCIN [Suspect]
     Active Substance: CLINDAMYCIN PHOSPHATE
     Dosage: UNK
  2. LIPITOR [Suspect]
     Active Substance: ATORVASTATIN CALCIUM
     Dosage: 40 MG (QUANTITY FOR 90 DAYS: 90)
  3. NITROSTAT [Suspect]
     Active Substance: NITROGLYCERIN
     Dosage: 0.4 MG (QUANTITY FOR 90 DAYS: 90)
  4. NORVASC [Suspect]
     Active Substance: AMLODIPINE BESYLATE
     Dosage: 5 MG (QUANTITY FOR 90 DAYS: 90)
  5. XALATAN [Suspect]
     Active Substance: LATANOPROST
     Dosage: UNK (2.5 ML (3 BOTTLES))

REACTIONS (2)
  - Gait disturbance [Unknown]
  - Dizziness [Unknown]
